FAERS Safety Report 9990108 (Version 4)
Quarter: 2015Q3

REPORT INFORMATION
  Report Type: Spontaneous
  Country: US (occurrence: None)
  Receive Date: 20131119
  Receipt Date: 20150914
  Transmission Date: 20151125
  Serious: Yes (Other)
  Sender: FDA-Public Use
  Company Number: ADR-2013-01384

PATIENT
  Sex: Female

DRUGS (2)
  1. BACLOFEN INTRATHECAL 25 MCG/ML [Suspect]
     Active Substance: BACLOFEN
     Indication: PAIN
     Dosage: 10.017MCG/DAY
  2. MORPHINE 15 MG/ML [Suspect]
     Active Substance: MORPHINE
     Dosage: 6.010MG/DAY

REACTIONS (24)
  - Rash [None]
  - Bladder mass [None]
  - Drug hypersensitivity [None]
  - Anxiety [None]
  - Hypersensitivity [None]
  - Pain [None]
  - Loss of consciousness [None]
  - Sciatica [None]
  - Tooth disorder [None]
  - Stress [None]
  - Therapeutic response decreased [None]
  - Dyspnoea [None]
  - Catecholamines urine abnormal [None]
  - Malaise [None]
  - Breakthrough pain [None]
  - Pruritus [None]
  - Chest discomfort [None]
  - Muscle spasms [None]
  - Heart rate increased [None]
  - Blood pressure increased [None]
  - Fall [None]
  - Urticaria [None]
  - Flushing [None]
  - Ovarian mass [None]
